FAERS Safety Report 24933372 (Version 1)
Quarter: 2025Q1

REPORT INFORMATION
  Report Type: Spontaneous
  Country: US (occurrence: US)
  Receive Date: 20250206
  Receipt Date: 20250206
  Transmission Date: 20250409
  Serious: Yes (Hospitalization, Other)
  Sender: AMNEAL
  Company Number: US-AMNEAL-2025-AMRX-00388

PATIENT
  Weight: 18.141 kg

DRUGS (1)
  1. BACLOFEN [Suspect]
     Active Substance: BACLOFEN
     Indication: Product used for unknown indication
     Dosage: 1000.92316 MICROGRAM (CONC: 2000MCG/ML), QD
     Route: 037

REACTIONS (2)
  - Incision site vesicles [Recovered/Resolved]
  - Medical device site erosion [Recovered/Resolved]

NARRATIVE: CASE EVENT DATE: 20241220
